FAERS Safety Report 6044156-6 (Version None)
Quarter: 2009Q1

REPORT INFORMATION
  Report Type: 
  Country: None (occurrence: None)
  Receive Date: 20090115
  Receipt Date: 20090115
  Transmission Date: 20090719
  Serious: Yes (Hospitalization, Disabling)
  Sender: FDA-Public Use
  Company Number: None

PATIENT
  Sex: Female

DRUGS (4)
  1. AREDIA [Suspect]
     Indication: BREAST CANCER METASTATIC
     Dosage: 90 MG MONTHLY IV
     Route: 042
     Dates: start: 19990101, end: 20030101
  2. ZOMETA [Suspect]
     Indication: BREAST CANCER METASTATIC
     Dosage: 4 MG MONTHLY IV
     Route: 042
     Dates: start: 20030101, end: 20050501
  3. UNSPECIFIED CHEMOTHERAPY [Concomitant]
  4. XELODA [Concomitant]

REACTIONS (2)
  - OSTEONECROSIS [None]
  - PURULENT DISCHARGE [None]
